FAERS Safety Report 18360598 (Version 5)
Quarter: 2020Q4

REPORT INFORMATION
  Report Type: Spontaneous
  Country: DZ (occurrence: DZ)
  Receive Date: 20201008
  Receipt Date: 20201208
  Transmission Date: 20210114
  Serious: Yes (Death, Other)
  Sender: FDA-Public Use
  Company Number: DZ-SA-2020SA259743

PATIENT

DRUGS (1)
  1. ALDURAZYME [Suspect]
     Active Substance: LARONIDASE
     Indication: MUCOPOLYSACCHARIDOSIS I
     Dosage: 200 IU/KG, Q15D
     Route: 041
     Dates: start: 20141123

REACTIONS (5)
  - Hernial eventration [Fatal]
  - Umbilical hernia [Unknown]
  - Somnolence [Unknown]
  - Hernia obstructive [Fatal]
  - Inguinal hernia [Unknown]

NARRATIVE: CASE EVENT DATE: 2017
